FAERS Safety Report 15009253 (Version 3)
Quarter: 2018Q4

REPORT INFORMATION
  Report Type: Spontaneous
  Country: FR (occurrence: FR)
  Receive Date: 20180614
  Receipt Date: 20181005
  Transmission Date: 20190204
  Serious: Yes (Hospitalization)
  Sender: FDA-Public Use
  Company Number: FR-009507513-1806FRA003555

PATIENT
  Age: 69 Year
  Sex: Male

DRUGS (1)
  1. BCG LIVE [Suspect]
     Active Substance: BACILLUS CALMETTE-GUERIN SUBSTRAIN TICE LIVE ANTIGEN
     Indication: BLADDER CANCER
     Dosage: A COURSE OF 6 WEEKLY INSTALLATIONS
     Route: 043

REACTIONS (2)
  - Granuloma [Recovered/Resolved]
  - Renal mass [Recovered/Resolved]
